FAERS Safety Report 11047348 (Version 1)
Quarter: 2015Q2

REPORT INFORMATION
  Report Type: Spontaneous
  Country: FR (occurrence: None)
  Receive Date: 20150416
  Receipt Date: 20150416
  Transmission Date: 20150821
  Serious: Yes (Other)
  Sender: FDA-Public Use
  Company Number: FR-20150097

PATIENT
  Age: 57 Year
  Sex: Female

DRUGS (2)
  1. LEVOTHYROX (LOVOTHYROXINE) [Concomitant]
  2. DOTAREM [Suspect]
     Active Substance: GADOTERATE MEGLUMINE
     Indication: BREAST CANCER RECURRENT
     Dosage: 20 ML (20 ML, 1 IN 1 D), INTRAVENOUS (NOT OTHERWISE SPECIFIED)
     Route: 042
     Dates: start: 20150330, end: 20150330

REACTIONS (5)
  - Nausea [None]
  - Dysgeusia [None]
  - Back pain [None]
  - Asthenia [None]
  - Dizziness [None]

NARRATIVE: CASE EVENT DATE: 20150402
